FAERS Safety Report 10362986 (Version 3)
Quarter: 2015Q2

REPORT INFORMATION
  Report Type: Spontaneous
  Country: US (occurrence: US)
  Receive Date: 20140805
  Receipt Date: 20150520
  Transmission Date: 20150821
  Serious: Yes (Death, Congenital Anomaly, Other)
  Sender: FDA-Public Use
  Company Number: US-PFIZER INC-2014215120

PATIENT
  Sex: Male

DRUGS (1)
  1. ZOLOFT [Suspect]
     Active Substance: SERTRALINE HYDROCHLORIDE
     Indication: DEPRESSION
     Dosage: UNK
     Route: 064
     Dates: start: 200502, end: 200508

REACTIONS (5)
  - Congenital hydrocephalus [Unknown]
  - Maternal exposure during pregnancy [Fatal]
  - Spina bifida [Unknown]
  - Premature baby [Unknown]
  - Neural tube defect [Fatal]

NARRATIVE: CASE EVENT DATE: 20050722
